FAERS Safety Report 19266857 (Version 1)
Quarter: 2021Q2

REPORT INFORMATION
  Report Type: Report from Study
  Country: CA (occurrence: CA)
  Receive Date: 20210518
  Receipt Date: 20210518
  Transmission Date: 20210717
  Serious: Yes (Hospitalization, Other)
  Sender: FDA-Public Use
  Company Number: CA-TAKEDA-2021TUS029517

PATIENT
  Age: 60 Year
  Sex: Female

DRUGS (2)
  1. VEDOLIZUMAB [Suspect]
     Active Substance: VEDOLIZUMAB
     Indication: CROHN^S DISEASE
     Dosage: 300 MILLIGRAM
     Route: 042
     Dates: start: 20210305, end: 20210416
  2. IRON [Concomitant]
     Active Substance: IRON
     Dosage: 300 MILLIGRAM
     Dates: start: 202009

REACTIONS (5)
  - Fatigue [Unknown]
  - Treatment failure [Unknown]
  - Diarrhoea [Unknown]
  - Abdominal discomfort [Unknown]
  - Crohn^s disease [Unknown]

NARRATIVE: CASE EVENT DATE: 20210507
